FAERS Safety Report 8858505 (Version 1)
Quarter: 2012Q4

REPORT INFORMATION
  Report Type: 
  Country: GB (occurrence: GB)
  Receive Date: 20121024
  Receipt Date: 20121024
  Transmission Date: 20130627
  Serious: Yes (Hospitalization)
  Sender: FDA-Public Use
  Company Number: GB-ROCHE-1148172

PATIENT
  Age: 20 Year
  Sex: Female

DRUGS (1)
  1. ROACTEMRA [Suspect]
     Indication: JUVENILE ARTHRITIS
     Route: 065

REACTIONS (1)
  - Pericarditis [Unknown]
